FAERS Safety Report 9538498 (Version 2)
Quarter: 2013Q3

REPORT INFORMATION
  Report Type: Spontaneous
  Country: FR (occurrence: FR)
  Receive Date: 20130920
  Receipt Date: 20130930
  Transmission Date: 20140515
  Serious: Yes (Hospitalization, Other)
  Sender: FDA-Public Use
  Company Number: FR-009507513-1309FRA005713

PATIENT
  Age: 77 Year
  Sex: Female

DRUGS (11)
  1. INVANZ [Suspect]
     Indication: BLOOD CULTURE POSITIVE
     Dosage: 1 DF, QD
     Route: 042
     Dates: start: 20130802, end: 20130807
  2. EFFEXOR LP [Suspect]
     Indication: DEPRESSION
     Dosage: 37.5 MG, QD
     Route: 048
     Dates: start: 20130710, end: 20130807
  3. SERESTA [Suspect]
     Indication: DEPRESSION
     Dosage: 50 MG, QD
     Route: 048
     Dates: start: 20130710, end: 20130805
  4. SERESTA [Suspect]
     Dosage: 25 MG, QD
     Route: 048
     Dates: start: 20130806
  5. TERCIAN [Suspect]
     Indication: AGITATION
     Dosage: 60 DF, QD
     Route: 048
     Dates: start: 20130710
  6. TERCIAN [Suspect]
     Dosage: 5 DF, TID
  7. HYDROCORTISONE [Concomitant]
     Indication: PEMPHIGOID
     Dosage: 20 MG, QAM
     Route: 048
     Dates: start: 20130710, end: 20130807
  8. NOVATREX (METHOTREXATE) [Concomitant]
     Indication: PEMPHIGOID
     Dosage: 3 DF, QW
     Route: 048
     Dates: start: 20130710, end: 20130807
  9. SPECIAFOLDINE [Concomitant]
     Indication: FOLATE DEFICIENCY
     Dosage: 1 DF, QD
     Route: 048
     Dates: start: 20130710, end: 20130807
  10. CEFTRIAXONE BASE [Concomitant]
     Indication: ANTIBIOTIC THERAPY
     Dosage: 1 G, QD
     Route: 058
     Dates: start: 20130724, end: 20130725
  11. TIENAM 500MG/500MG, POUDRE POUR PERFUSION [Concomitant]
     Indication: ANTIBIOTIC THERAPY
     Dosage: 1 DF, TID
     Route: 042
     Dates: start: 20130725, end: 20130801

REACTIONS (2)
  - Status epilepticus [Recovering/Resolving]
  - Loss of consciousness [Recovering/Resolving]
